FAERS Safety Report 9260055 (Version 2)
Quarter: 2013Q2

REPORT INFORMATION
  Report Type: Spontaneous
  Country: US (occurrence: US)
  Receive Date: 20130429
  Receipt Date: 20130522
  Transmission Date: 20140414
  Serious: Yes (Other)
  Sender: FDA-Public Use
  Company Number: US-BAYER-2013-051245

PATIENT
  Age: 37 Year
  Sex: Female
  Weight: 77.1 kg

DRUGS (4)
  1. YAZ [Suspect]
     Dosage: UNK
     Dates: start: 200609
  2. BIAXIN XL [Concomitant]
     Dosage: 500 MG, TIMES 10 DAYS
  3. TUSSIONEX [Concomitant]
     Indication: COUGH
     Dosage: BID
  4. NASONEX [Concomitant]

REACTIONS (7)
  - Deep vein thrombosis [Recovered/Resolved]
  - Pain [None]
  - Injury [Recovered/Resolved]
  - General physical health deterioration [Recovered/Resolved]
  - Anxiety [None]
  - Emotional distress [None]
  - Pain [Recovered/Resolved]
